FAERS Safety Report 9056891 (Version 2)
Quarter: 2013Q1

REPORT INFORMATION
  Report Type: Spontaneous
  Country: DK (occurrence: GB)
  Receive Date: 20130201
  Receipt Date: 20130328
  Transmission Date: 20140127
  Serious: Yes (Other)
  Sender: FDA-Public Use
  Company Number: GB-FRI-1000042325

PATIENT
  Age: 81 Year
  Sex: Male

DRUGS (1)
  1. CITALOPRAM [Suspect]
     Dosage: 10 MG
     Route: 048
     Dates: start: 2010, end: 201206

REACTIONS (1)
  - Loss of consciousness [Recovered/Resolved]
